FAERS Safety Report 4446137-2 (Version None)
Quarter: 2004Q3

REPORT INFORMATION
  Report Type: 
  Country: None (occurrence: None)
  Receive Date: 20040907
  Receipt Date: 20040830
  Transmission Date: 20050211
  Serious: Yes (Disabling)
  Sender: FDA-Public Use
  Company Number: JP-ROCHE-378838

PATIENT
  Age: 77 Year
  Sex: Male

DRUGS (2)
  1. PANALDINE [Suspect]
     Indication: THROMBOSIS PROPHYLAXIS
     Route: 048
     Dates: start: 20040816, end: 20040818
  2. ASPIRIN (NON-ROCHE) [Concomitant]
     Dosage: DRUG REPORTED AS BAYASPIRIN.
     Dates: end: 20040816

REACTIONS (2)
  - SHOCK HAEMORRHAGIC [None]
  - THROMBOTIC THROMBOCYTOPENIC PURPURA [None]
